FAERS Safety Report 9172336 (Version 2)
Quarter: 2013Q2

REPORT INFORMATION
  Report Type: Spontaneous
  Country: US (occurrence: US)
  Receive Date: 20130319
  Receipt Date: 20130402
  Transmission Date: 20140414
  Serious: Yes (Other)
  Sender: FDA-Public Use
  Company Number: US-UCBSA-080944

PATIENT
  Age: 16 Year
  Sex: Female

DRUGS (4)
  1. METHYLPHENIDATE [Suspect]
     Indication: ATTENTION DEFICIT/HYPERACTIVITY DISORDER
     Dosage: UNKNOWN DOSE
     Route: 048
  2. METHYLPHENIDATE [Suspect]
     Indication: OPPOSITIONAL DEFIANT DISORDER
     Dosage: UNKNOWN DOSE
     Route: 048
  3. RISPERIDONE [Suspect]
     Indication: OPPOSITIONAL DEFIANT DISORDER
     Dosage: UNKNOWN DOSE
  4. RISPERIDONE [Suspect]
     Indication: ATTENTION DEFICIT/HYPERACTIVITY DISORDER
     Dosage: UNKNOWN DOSE

REACTIONS (1)
  - Focal segmental glomerulosclerosis [Recovered/Resolved]
